FAERS Safety Report 16004957 (Version 1)
Quarter: 2019Q1

REPORT INFORMATION
  Report Type: Spontaneous
  Country: US (occurrence: US)
  Receive Date: 20190226
  Receipt Date: 20190226
  Transmission Date: 20190418
  Serious: Yes (Other)
  Sender: FDA-Public Use
  Company Number: PHEH2019US008359

PATIENT
  Sex: Male

DRUGS (1)
  1. TASIGNA [Suspect]
     Active Substance: NILOTINIB
     Indication: CHRONIC MYELOID LEUKAEMIA
     Dosage: 1 DF, BID
     Route: 048
     Dates: start: 20140120

REACTIONS (19)
  - Myalgia [Unknown]
  - Type 2 diabetes mellitus [Unknown]
  - Diabetes mellitus [Unknown]
  - Diverticulum [Unknown]
  - Arthralgia [Unknown]
  - Upper respiratory tract infection [Unknown]
  - Chronic kidney disease [Unknown]
  - Vomiting [Unknown]
  - Pruritus [Unknown]
  - Chronic obstructive pulmonary disease [Unknown]
  - Cholelithiasis [Unknown]
  - Dyslipidaemia [Unknown]
  - Polyneuropathy [Unknown]
  - Major depression [Unknown]
  - Hyponatraemia [Unknown]
  - Cholecystitis acute [Unknown]
  - Chronic left ventricular failure [Unknown]
  - Hyperbilirubinaemia [Unknown]
  - Diarrhoea [Unknown]
